FAERS Safety Report 6740833-X (Version None)
Quarter: 2010Q2

REPORT INFORMATION
  Report Type: 
  Country: None (occurrence: None)
  Receive Date: 20100526
  Receipt Date: 20100518
  Transmission Date: 20101027
  Serious: Yes (Hospitalization)
  Sender: FDA-Public Use
  Company Number: US-BIOGENIDEC-2010BI012574

PATIENT
  Age: 30 Year
  Sex: Female
  Weight: 68 kg

DRUGS (4)
  1. TYSABRI [Suspect]
     Indication: MULTIPLE SCLEROSIS
     Route: 042
     Dates: start: 20100311, end: 20100408
  2. ZOLOFT [Concomitant]
     Dates: start: 20100118, end: 20100412
  3. DYAZIDE [Concomitant]
     Dates: start: 20100118, end: 20100412
  4. TRAZODONE HCL [Concomitant]
     Dates: start: 20070914, end: 20100412

REACTIONS (10)
  - ANAPHYLACTIC SHOCK [None]
  - CARDIAC ENZYMES INCREASED [None]
  - DYSPNOEA [None]
  - ELECTROCARDIOGRAM QT PROLONGED [None]
  - HYPOTENSION [None]
  - INFUSION SITE ERYTHEMA [None]
  - INFUSION SITE PAIN [None]
  - MYOCARDIAL INFARCTION [None]
  - OEDEMA PERIPHERAL [None]
  - PNEUMONIA [None]
